FAERS Safety Report 18384703 (Version 3)
Quarter: 2020Q4

REPORT INFORMATION
  Report Type: Report from Study
  Country: DO (occurrence: DO)
  Receive Date: 20201015
  Receipt Date: 20201123
  Transmission Date: 20210114
  Serious: Yes (Death, Hospitalization, Other)
  Sender: FDA-Public Use
  Company Number: NVSC2020DO276538

PATIENT
  Age: 39 Year
  Sex: Male
  Weight: 49.89 kg

DRUGS (2)
  1. REVOLADE [Suspect]
     Active Substance: ELTROMBOPAG
     Indication: APLASTIC ANAEMIA
     Dosage: 50 MG, QD (CAPSULE, 2 OF 25MG)
     Route: 048
     Dates: start: 20201001
  2. VITAMAN [Concomitant]
     Active Substance: MINERALS\VITAMINS
     Indication: HAEMOGLOBIN
     Dosage: UNK
     Route: 065

REACTIONS (6)
  - Haemoglobin decreased [Unknown]
  - Disease progression [Fatal]
  - Aplastic anaemia [Fatal]
  - Platelet count decreased [Unknown]
  - Haemorrhage [Unknown]
  - General physical health deterioration [Unknown]

NARRATIVE: CASE EVENT DATE: 20201005
